FAERS Safety Report 4995566-7 (Version None)
Quarter: 2006Q2

REPORT INFORMATION
  Report Type: 
  Country: None (occurrence: None)
  Receive Date: 20060504
  Receipt Date: 20060421
  Transmission Date: 20061013
  Serious: Yes (Death)
  Sender: FDA-Public Use
  Company Number: 163-20785-06040749

PATIENT
  Age: 33 Year
  Sex: Female

DRUGS (2)
  1. THALOMID [Suspect]
     Indication: LUNG NEOPLASM MALIGNANT
     Dosage: 300 - 1000 MG, QD, ORAL
     Route: 048
     Dates: start: 20020809, end: 20040101
  2. REVLIMID [Suspect]

REACTIONS (1)
  - LEIOMYOSARCOMA [None]
